FAERS Safety Report 9174779 (Version 1)
Quarter: 2013Q1

REPORT INFORMATION
  Report Type: Spontaneous
  Country: GR (occurrence: None)
  Receive Date: 20130318
  Receipt Date: 20130318
  Transmission Date: 20140127
  Serious: Yes (Other)
  Sender: FDA-Public Use
  Company Number: 7199391

PATIENT
  Age: 26 Year
  Sex: Female

DRUGS (1)
  1. EUTHYROX (LEVOTHYROXINE SODIUM)(TABLET)(LEVOTHYROXINE SODIUM) [Suspect]
     Indication: HYPOTHYROIDISM
     Dosage: 1 DF, 1 IN 1 D
     Route: 048
     Dates: start: 201212, end: 201303

REACTIONS (3)
  - Drug ineffective [None]
  - Haematoma [None]
  - Bleeding time prolonged [None]
